FAERS Safety Report 14152517 (Version 1)
Quarter: 2017Q4

REPORT INFORMATION
  Report Type: Spontaneous
  Country: US (occurrence: US)
  Receive Date: 20171102
  Receipt Date: 20171102
  Transmission Date: 20180321
  Serious: Yes (Other)
  Sender: FDA-Public Use
  Company Number: US-BAYER-2017-206596

PATIENT
  Sex: Male

DRUGS (1)
  1. COPPERTONE SPF 4 [Suspect]
     Active Substance: OCTINOXATE\OCTOCRYLENE
     Dosage: UNK

REACTIONS (1)
  - Skin cancer [Unknown]
